FAERS Safety Report 8199655-8 (Version None)
Quarter: 2012Q1

REPORT INFORMATION
  Report Type: 
  Country: None (occurrence: None)
  Receive Date: 20120311
  Receipt Date: 20120229
  Transmission Date: 20120608
  Serious: Yes (Other)
  Sender: FDA-Public Use
  Company Number: DE-ASTRAZENECA-2012SE14800

PATIENT
  Sex: Female

DRUGS (1)
  1. SEROQUEL [Suspect]
     Indication: BIPOLAR DISORDER
     Route: 048
     Dates: start: 20100901

REACTIONS (6)
  - VOMITING [None]
  - OEDEMA [None]
  - RHABDOMYOLYSIS [None]
  - NAUSEA [None]
  - MYALGIA [None]
  - BLOOD CREATINE INCREASED [None]
